FAERS Safety Report 10379728 (Version 3)
Quarter: 2014Q4

REPORT INFORMATION
  Report Type: Report from Study
  Country: US (occurrence: US)
  Receive Date: 20140812
  Receipt Date: 20141124
  Transmission Date: 20150528
  Serious: Yes (Hospitalization)
  Sender: FDA-Public Use
  Company Number: US-TAKEDA-2014MPI002104

PATIENT
  Age: 54 Year
  Sex: Male
  Weight: 87.75 kg

DRUGS (11)
  1. VELCADE [Suspect]
     Active Substance: BORTEZOMIB
     Indication: PLASMA CELL MYELOMA
     Dosage: UNK
     Route: 042
     Dates: end: 20111104
  2. BACTRIM [Concomitant]
     Active Substance: SULFAMETHOXAZOLE\TRIMETHOPRIM
     Route: 048
  3. ZOVIRAX [Concomitant]
     Active Substance: ACYCLOVIR
     Route: 048
  4. OXYCONTIN [Concomitant]
     Active Substance: OXYCODONE HYDROCHLORIDE
     Route: 048
  5. ONDANSETRON [Concomitant]
     Active Substance: ONDANSETRON
     Route: 048
  6. CEFAZOLIN [Concomitant]
     Active Substance: CEFAZOLIN
     Dosage: 1000 MG, UNK
     Route: 042
     Dates: start: 20140531, end: 20140601
  7. OXYCODONE AND ACETAMINOPHEN [Concomitant]
     Active Substance: ACETAMINOPHEN\OXYCODONE\OXYCODONE HYDROCHLORIDE
     Route: 048
  8. ASPIRIN. [Concomitant]
     Active Substance: ASPIRIN
     Route: 048
  9. VENLAFAXINE [Concomitant]
     Active Substance: VENLAFAXINE HYDROCHLORIDE
     Route: 048
  10. SODIUM CHLORIDE. [Concomitant]
     Active Substance: SODIUM CHLORIDE
     Dosage: 0.9 %, UNK
     Route: 042
     Dates: start: 20140531, end: 20140601
  11. MORPHINE [Concomitant]
     Active Substance: MORPHINE
     Dosage: 4 MG, UNK
     Route: 042
     Dates: start: 20140531, end: 20140601

REACTIONS (6)
  - Road traffic accident [Recovered/Resolved]
  - Rib fracture [Not Recovered/Not Resolved]
  - Skin abrasion [Recovered/Resolved]
  - Laceration [Recovered/Resolved]
  - Cervical vertebral fracture [Not Recovered/Not Resolved]
  - Ulna fracture [Recovered/Resolved]

NARRATIVE: CASE EVENT DATE: 20140531
